FAERS Safety Report 26157544 (Version 1)
Quarter: 2025Q4

REPORT INFORMATION
  Report Type: Spontaneous
  Country: EU (occurrence: EU)
  Receive Date: 20251215
  Receipt Date: 20251215
  Transmission Date: 20260118
  Serious: Yes (Hospitalization)
  Sender: TEVA
  Company Number: None

PATIENT
  Age: 71 Year
  Sex: Male
  Weight: 73 kg

DRUGS (9)
  1. VALACYCLOVIR HYDROCHLORIDE [Suspect]
     Active Substance: VALACYCLOVIR HYDROCHLORIDE
     Indication: Plasma cell myeloma
     Route: 048
     Dates: start: 20250908, end: 20251117
  2. BACTRIM [Suspect]
     Active Substance: SULFAMETHOXAZOLE\TRIMETHOPRIM
     Indication: Plasma cell myeloma
     Dosage: MONDAYS, WEDNESDAYS, FRIDAYS
     Route: 048
     Dates: start: 20250908, end: 20251110
  3. REVLIMID [Suspect]
     Active Substance: LENALIDOMIDE
     Indication: Plasma cell myeloma
     Dosage: FOR 21 DAYS OF THE 28-DAY CYCLE
     Route: 048
     Dates: start: 20250908, end: 20251117
  4. DARZALEX [Suspect]
     Active Substance: DARATUMUMAB
     Indication: Plasma cell myeloma
     Dosage: THEN EVERY TWO WEEKS
     Route: 042
     Dates: start: 20250908, end: 20251103
  5. AMOXICILLIN [Suspect]
     Active Substance: AMOXICILLIN
     Indication: Plasma cell myeloma
     Route: 048
     Dates: start: 20250908, end: 20251117
  6. DEXAMETHASONE [Suspect]
     Active Substance: DEXAMETHASONE
     Indication: Plasma cell myeloma
     Dosage: EVERY MONDAY
     Route: 042
     Dates: start: 20250908, end: 20251117
  7. CETIRIZINE [Suspect]
     Active Substance: CETIRIZINE HYDROCHLORIDE
     Indication: Plasma cell myeloma
     Dosage: EVERY MONDAY, CETIRIZINE (HYDROCHLORIDE)
     Route: 048
     Dates: start: 20250908, end: 20251117
  8. VELCADE [Suspect]
     Active Substance: BORTEZOMIB
     Indication: Plasma cell myeloma
     Dosage: EVERY MONDAY
     Route: 042
     Dates: start: 20250908, end: 20251110
  9. ELIQUIS [Suspect]
     Active Substance: APIXABAN
     Indication: Plasma cell myeloma
     Route: 048
     Dates: start: 20250908, end: 20251117

REACTIONS (1)
  - Drug reaction with eosinophilia and systemic symptoms [Not Recovered/Not Resolved]

NARRATIVE: CASE EVENT DATE: 20251107
